FAERS Safety Report 19515009 (Version 1)
Quarter: 2021Q3

REPORT INFORMATION
  Report Type: Spontaneous
  Country: CN (occurrence: CN)
  Receive Date: 20210709
  Receipt Date: 20210709
  Transmission Date: 20211014
  Serious: Yes (Other)
  Sender: FDA-Public Use
  Company Number: CN-PURDUE-USA-2021-0273944

PATIENT
  Age: 48 Year
  Sex: Female
  Weight: 54 kg

DRUGS (1)
  1. OXYCODONE HYDROCHLORIDE. [Suspect]
     Active Substance: OXYCODONE HYDROCHLORIDE
     Indication: ANALGESIC THERAPY
     Dosage: 20 MG, Q12H
     Route: 048
     Dates: start: 20210627, end: 20210627

REACTIONS (5)
  - Loss of consciousness [Recovering/Resolving]
  - Toxicity to various agents [Recovering/Resolving]
  - Pupillary light reflex tests abnormal [Recovering/Resolving]
  - Somnolence [Recovering/Resolving]
  - Miosis [Recovering/Resolving]

NARRATIVE: CASE EVENT DATE: 20210627
